FAERS Safety Report 6119520-7 (Version None)
Quarter: 2009Q1

REPORT INFORMATION
  Report Type: 
  Country: None (occurrence: None)
  Receive Date: 20090316
  Receipt Date: 20090306
  Transmission Date: 20090719
  Serious: Yes (Hospitalization)
  Sender: FDA-Public Use
  Company Number: A0773220A

PATIENT
  Age: 53 Year
  Sex: Female
  Weight: 65.9 kg

DRUGS (13)
  1. AVANDIA [Suspect]
     Indication: DIABETES MELLITUS
     Dosage: 4MG TWICE PER DAY
     Route: 048
     Dates: start: 20040601, end: 20070601
  2. ACTOS [Concomitant]
  3. GLUCOPHAGE [Concomitant]
  4. METFORMIN HCL [Concomitant]
  5. GLUCOTROL [Concomitant]
  6. HYDROCHLOROTHIAZIDE [Concomitant]
  7. TRAZODONE HCL [Concomitant]
  8. TRAMADOL HCL [Concomitant]
  9. AMITRIPTYLINE HCL [Concomitant]
  10. ZYRTEC [Concomitant]
  11. NOVOLOG [Concomitant]
  12. LORATADINE [Concomitant]
  13. PRINIVIL [Concomitant]

REACTIONS (4)
  - AORTIC VALVE INCOMPETENCE [None]
  - CARDIAC FAILURE CONGESTIVE [None]
  - MYOCARDIAL INFARCTION [None]
  - PULMONARY HYPERTENSION [None]
